FAERS Safety Report 10730429 (Version 4)
Quarter: 2015Q3

REPORT INFORMATION
  Report Type: Spontaneous
  Country: JP (occurrence: JP)
  Receive Date: 20150122
  Receipt Date: 20150821
  Transmission Date: 20151125
  Serious: Yes (Hospitalization, Other)
  Sender: FDA-Public Use
  Company Number: PHJP2015JP000459

PATIENT
  Age: 78 Year
  Sex: Male

DRUGS (3)
  1. CARBAMAZEPINE. [Suspect]
     Active Substance: CARBAMAZEPINE
     Indication: TRIGEMINAL NEURALGIA
     Dosage: UNK
     Route: 048
  2. WARFARIN [Concomitant]
     Active Substance: WARFARIN
     Indication: ATRIAL FIBRILLATION
     Route: 065
  3. DABIGATRAN [Interacting]
     Active Substance: DABIGATRAN
     Indication: ATRIAL FIBRILLATION
     Dosage: 150 MG, BID
     Route: 048

REACTIONS (12)
  - Peripheral artery thrombosis [Recovering/Resolving]
  - Discomfort [Recovering/Resolving]
  - Feeling cold [Unknown]
  - Intermittent claudication [Unknown]
  - Embolism arterial [Unknown]
  - Thrombosis [Recovering/Resolving]
  - Muscular weakness [Recovered/Resolved]
  - Skin discolouration [Recovered/Resolved]
  - Drug interaction [Unknown]
  - Peripheral coldness [Recovering/Resolving]
  - Malaise [Unknown]
  - Musculoskeletal stiffness [Unknown]
